FAERS Safety Report 7409397-1 (Version None)
Quarter: 2011Q2

REPORT INFORMATION
  Report Type: 
  Country: None (occurrence: None)
  Receive Date: 20110412
  Receipt Date: 20110323
  Transmission Date: 20111010
  Serious: Yes (Other)
  Sender: FDA-Public Use
  Company Number: US-BAYER-200934516NA

PATIENT
  Age: 74 Year
  Sex: Male

DRUGS (7)
  1. CARDURA [Concomitant]
     Dosage: UNK
  2. COUMADIN [Concomitant]
  3. TRASYLOL [Suspect]
     Indication: PRODUCT USED FOR UNKNOWN INDICATION
     Route: 042
     Dates: start: 20070202
  4. LASIX [Concomitant]
     Dosage: 20 MG, BID
  5. COLCHICINE [Concomitant]
  6. ACETYLSALICYLIC ACID SRT [Concomitant]
  7. ATENOLOL [Concomitant]
     Dosage: 100 MG, QD

REACTIONS (10)
  - RENAL FAILURE [None]
  - STRESS [None]
  - PAIN [None]
  - UNEVALUABLE EVENT [None]
  - RENAL INJURY [None]
  - EMOTIONAL DISTRESS [None]
  - ANXIETY [None]
  - FEAR [None]
  - RENAL IMPAIRMENT [None]
  - INJURY [None]
